FAERS Safety Report 7814364-X (Version None)
Quarter: 2011Q4

REPORT INFORMATION
  Report Type: 
  Country: None (occurrence: None)
  Receive Date: 20111014
  Receipt Date: 20111003
  Transmission Date: 20120403
  Serious: Yes (Hospitalization, Other)
  Sender: FDA-Public Use
  Company Number: PHHY2011FR88021

PATIENT
  Sex: Male

DRUGS (10)
  1. AMIODARONE HCL [Suspect]
     Dosage: 1000 MG, WEEKLY
     Dates: end: 20110909
  2. STALEVO 100 [Concomitant]
  3. ESCITALOPRAM [Concomitant]
  4. PREVISCAN [Concomitant]
  5. CLOZAPINE [Suspect]
     Dosage: 25 MG, QD
     Dates: end: 20110909
  6. POTASSIUM CHLORIDE [Concomitant]
  7. MOVIPREP [Concomitant]
  8. NITROGLYCERIN [Concomitant]
  9. LEVOTHYROXINE SODIUM [Concomitant]
  10. FLUDROCORTISONE ACETATE [Concomitant]

REACTIONS (6)
  - COGNITIVE DISORDER [None]
  - SINUS BRADYCARDIA [None]
  - SUFFOCATION FEELING [None]
  - ABDOMINAL PAIN [None]
  - PARKINSON'S DISEASE [None]
  - DISTURBANCE IN ATTENTION [None]
